FAERS Safety Report 8967604 (Version 1)
Quarter: 2012Q4

REPORT INFORMATION
  Report Type: 
  Country: US (occurrence: US)
  Receive Date: 20121214
  Receipt Date: 20121214
  Transmission Date: 20130627
  Serious: Yes (Other)
  Sender: FDA-Public Use
  Company Number: US-PFIZER INC-2012313747

PATIENT
  Age: 47 Year
  Sex: Male
  Weight: 99.77 kg

DRUGS (1)
  1. DEPO-TESTOSTERONE [Suspect]
     Indication: TESTOSTERONE LOW
     Dosage: UNK, weekly
     Route: 030

REACTIONS (1)
  - Multiple sclerosis [Not Recovered/Not Resolved]
